FAERS Safety Report 10566216 (Version 10)
Quarter: 2016Q4

REPORT INFORMATION
  Report Type: Report from Study
  Country: US (occurrence: US)
  Receive Date: 20141105
  Receipt Date: 20161228
  Transmission Date: 20170206
  Serious: Yes (Hospitalization, Other)
  Sender: FDA-Public Use
  Company Number: US-ALEXION-A201404204

PATIENT
  Sex: Male

DRUGS (1)
  1. SOLIRIS [Suspect]
     Active Substance: ECULIZUMAB
     Indication: PAROXYSMAL NOCTURNAL HAEMOGLOBINURIA
     Dosage: UNK
     Route: 042
     Dates: start: 201212

REACTIONS (23)
  - Arthralgia [Not Recovered/Not Resolved]
  - Arthralgia [Unknown]
  - Bone lesion [Unknown]
  - Haemoglobin abnormal [Not Recovered/Not Resolved]
  - Haemoglobin decreased [Unknown]
  - Osteonecrosis [Not Recovered/Not Resolved]
  - Cellulitis [Not Recovered/Not Resolved]
  - Pyrexia [Not Recovered/Not Resolved]
  - Subcutaneous abscess [Unknown]
  - Gingival bleeding [Not Recovered/Not Resolved]
  - Buttock injury [Unknown]
  - White blood cell count decreased [Not Recovered/Not Resolved]
  - Arthralgia [Unknown]
  - Pyrexia [Unknown]
  - Chills [Unknown]
  - Pyrexia [Unknown]
  - Cellulitis [Not Recovered/Not Resolved]
  - Upper respiratory tract congestion [Unknown]
  - Dyspnoea [Unknown]
  - Pharyngitis [Recovering/Resolving]
  - Contusion [Not Recovered/Not Resolved]
  - Pyrexia [Not Recovered/Not Resolved]
  - Ingrown hair [Unknown]

NARRATIVE: CASE EVENT DATE: 201411
